FAERS Safety Report 7944595-X (Version None)
Quarter: 2011Q4

REPORT INFORMATION
  Report Type: 
  Country: None (occurrence: None)
  Receive Date: 20111122
  Receipt Date: 20110630
  Transmission Date: 20120403
  Serious: Yes (Other)
  Sender: FDA-Public Use
  Company Number: PHHY2011US16949

PATIENT
  Age: 62 Year
  Sex: Male

DRUGS (8)
  1. MULTIVITAMIN [Concomitant]
  2. LIPITOR [Concomitant]
  3. CYMBALTA [Concomitant]
  4. GILENYA [Suspect]
     Indication: MULTIPLE SCLEROSIS
     Dosage: 0.5 MG, QD, ORAL
     Route: 048
     Dates: start: 20110223, end: 20110618
  5. GLUCOSAMINE W/CHONDROITIN (CHONDROITIN SULFATE, GLUCOSAMINE) [Concomitant]
  6. DEXTROAMPHETAMINE [Concomitant]
  7. LEVITRA [Concomitant]
  8. CALCIUM [Concomitant]

REACTIONS (15)
  - PAIN [None]
  - INFLUENZA LIKE ILLNESS [None]
  - FEELING ABNORMAL [None]
  - DIZZINESS [None]
  - ASTHENIA [None]
  - MULTIPLE SCLEROSIS RELAPSE [None]
  - GASTRIC DISORDER [None]
  - VISUAL IMPAIRMENT [None]
  - TENSION [None]
  - EYE PAIN [None]
  - SENSATION OF HEAVINESS [None]
  - TRIGEMINAL NEURALGIA [None]
  - BRADYPHRENIA [None]
  - HEADACHE [None]
  - NAUSEA [None]
